FAERS Safety Report 26188170 (Version 1)
Quarter: 2025Q4

REPORT INFORMATION
  Report Type: Spontaneous
  Country: EU (occurrence: EU)
  Receive Date: 20251222
  Receipt Date: 20251222
  Transmission Date: 20260118
  Serious: Yes (Hospitalization)
  Sender: PFIZER
  Company Number: None

PATIENT
  Age: 55 Year
  Sex: Female
  Weight: 42.5 kg

DRUGS (26)
  1. VINCRISTINE SULFATE [Suspect]
     Active Substance: VINCRISTINE SULFATE
     Indication: Diffuse large B-cell lymphoma
     Dosage: 2 MG, SINGLE
     Route: 042
     Dates: start: 20250527, end: 20250527
  2. VINCRISTINE SULFATE [Suspect]
     Active Substance: VINCRISTINE SULFATE
     Dosage: 2 MG, SINGLE
     Route: 042
     Dates: start: 20250610, end: 20250610
  3. VINCRISTINE SULFATE [Suspect]
     Active Substance: VINCRISTINE SULFATE
     Dosage: 2 MG, SINGLE
     Route: 042
     Dates: start: 20250625, end: 20250625
  4. BACTRIM [Suspect]
     Active Substance: SULFAMETHOXAZOLE\TRIMETHOPRIM
     Indication: Antibiotic prophylaxis
     Dosage: 1 DF, 3X/ WEEK, MONDAY, WEDNESDAY AND FRIDAY
     Route: 048
     Dates: start: 20250609, end: 20250715
  5. PROCARBAZINE HYDROCHLORIDE [Suspect]
     Active Substance: PROCARBAZINE HYDROCHLORIDE
     Indication: Diffuse large B-cell lymphoma
     Dosage: 145 MG, 1X/DAY
     Route: 042
     Dates: start: 20250527, end: 20250602
  6. PROCARBAZINE HYDROCHLORIDE [Suspect]
     Active Substance: PROCARBAZINE HYDROCHLORIDE
     Dosage: 145 MG, 1X/DAY
     Route: 042
     Dates: start: 20250626, end: 20250702
  7. MIANSERIN HYDROCHLORIDE [Suspect]
     Active Substance: MIANSERIN HYDROCHLORIDE
     Indication: Depression
     Dosage: 10 MG, 1X/DAY
     Route: 048
     Dates: start: 20250630, end: 20250715
  8. VALACYCLOVIR HYDROCHLORIDE [Suspect]
     Active Substance: VALACYCLOVIR HYDROCHLORIDE
     Indication: Antiviral prophylaxis
     Dosage: 500 MG, 2X/DAY
     Route: 048
     Dates: start: 20250630, end: 20250718
  9. RITUXIMAB [Concomitant]
     Active Substance: RITUXIMAB
     Indication: Diffuse large B-cell lymphoma
     Dosage: 535 MG, SINGLE
     Route: 042
     Dates: start: 20250527, end: 20250527
  10. RITUXIMAB [Concomitant]
     Active Substance: RITUXIMAB
     Dosage: 535 MG, SINGLE
     Route: 042
     Dates: start: 20250625, end: 20250625
  11. RITUXIMAB [Concomitant]
     Active Substance: RITUXIMAB
     Dosage: 500 MG, SINGLE
     Route: 042
     Dates: start: 20250825, end: 20250825
  12. RITUXIMAB [Concomitant]
     Active Substance: RITUXIMAB
     Dosage: 500 MG, SINGLE
     Route: 042
     Dates: start: 20250930, end: 20250930
  13. METHOTREXATE [Concomitant]
     Active Substance: METHOTREXATE
     Indication: Diffuse large B-cell lymphoma
     Dosage: 5000 MG, SINGLE
     Route: 042
     Dates: start: 20250527, end: 20250527
  14. METHOTREXATE [Concomitant]
     Active Substance: METHOTREXATE
     Dosage: 5000 MG, SINGLE
     Route: 042
     Dates: start: 20250610, end: 20250610
  15. METHOTREXATE [Concomitant]
     Active Substance: METHOTREXATE
     Dosage: 5000 MG, SINGLE
     Route: 042
     Dates: start: 20250625, end: 20250625
  16. METHOTREXATE [Concomitant]
     Active Substance: METHOTREXATE
     Dosage: 2500 MG, SINGLE
     Route: 042
     Dates: start: 20250825, end: 20250825
  17. METHOTREXATE [Concomitant]
     Active Substance: METHOTREXATE
     Dosage: 2500 MG, SINGLE
     Route: 042
     Dates: start: 20250930, end: 20250930
  18. INSULIN GLARGINE [Concomitant]
     Active Substance: INSULIN GLARGINE
     Indication: Type 2 diabetes mellitus
     Dosage: 8 IU, EVERY 1 HOUR
     Route: 058
     Dates: end: 20250728
  19. JARDIANCE [Concomitant]
     Active Substance: EMPAGLIFLOZIN
     Indication: Type 2 diabetes mellitus
     Dosage: 10 MG, 1X/DAY
     Route: 048
     Dates: end: 20250818
  20. JANUVIA [Concomitant]
     Active Substance: SITAGLIPTIN PHOSPHATE
     Indication: Type 2 diabetes mellitus
     Dosage: 100 MG, 1X/DAY
     Route: 048
  21. INDAPAMIDE\PERINDOPRIL ARGININE [Concomitant]
     Active Substance: INDAPAMIDE\PERINDOPRIL ARGININE
     Indication: Hypertension
     Dosage: 1 DF, 1X/DAY
     Route: 048
     Dates: end: 20250720
  22. INDAPAMIDE\PERINDOPRIL ARGININE [Concomitant]
     Active Substance: INDAPAMIDE\PERINDOPRIL ARGININE
     Dosage: 1 DF, 1X/DAY
     Route: 048
     Dates: start: 20250730
  23. BIMATOPROST\TIMOLOL [Concomitant]
     Active Substance: BIMATOPROST\TIMOLOL
     Indication: Glaucoma
     Dosage: 1 DROP, 1X/DAY
     Route: 047
     Dates: start: 1999
  24. DYDROGESTERONE\ESTRADIOL [Concomitant]
     Active Substance: DYDROGESTERONE\ESTRADIOL
     Indication: Turner^s syndrome
     Dosage: 1 DF, 1X/DAY
     Route: 048
     Dates: end: 20250721
  25. POTASSIUM CHLORIDE [Concomitant]
     Active Substance: POTASSIUM CHLORIDE
     Indication: Mineral supplementation
     Dosage: 6600 MG, 1X/DAY
     Route: 048
     Dates: end: 202507
  26. POTASSIUM CHLORIDE [Concomitant]
     Active Substance: POTASSIUM CHLORIDE
     Dosage: 600 MG, EVERY 6 HOURS
     Route: 048
     Dates: start: 202507

REACTIONS (1)
  - Hepatitis [Recovering/Resolving]

NARRATIVE: CASE EVENT DATE: 20250708
